FAERS Safety Report 24073660 (Version 1)
Quarter: 2024Q3

REPORT INFORMATION
  Report Type: Spontaneous
  Country: US (occurrence: US)
  Receive Date: 20240710
  Receipt Date: 20240710
  Transmission Date: 20241016
  Serious: No
  Sender: PAREXEL
  Company Number: US-NOVEN PHARMACEUTICALS, INC.-2024-NOV-US000544

PATIENT
  Sex: Female

DRUGS (1)
  1. XELSTRYM [Suspect]
     Active Substance: DEXTROAMPHETAMINE
     Indication: Attention deficit hyperactivity disorder
     Dosage: UNKNOWN (9MG OR 13.5 MG)
     Route: 062

REACTIONS (5)
  - Application site erosion [Unknown]
  - Application site dermatitis [Unknown]
  - Application site irritation [Unknown]
  - Application site pruritus [Unknown]
  - Application site vesicles [Unknown]
